FAERS Safety Report 16474047 (Version 1)
Quarter: 2019Q2

REPORT INFORMATION
  Report Type: Spontaneous
  Country: US (occurrence: US)
  Receive Date: 20190515
  Receipt Date: 20190515
  Transmission Date: 20190711
  Serious: Yes (Other)
  Sender: FDA-Public Use
  Company Number: None

PATIENT
  Age: 58 Year
  Sex: Male
  Weight: 92.53 kg

DRUGS (2)
  1. VIIBRYD [Suspect]
     Active Substance: VILAZODONE HYDROCHLORIDE
     Indication: PANIC DISORDER
  2. VIIBRYD [Suspect]
     Active Substance: VILAZODONE HYDROCHLORIDE
     Indication: DEPRESSION

REACTIONS (11)
  - Dizziness [None]
  - Rhinorrhoea [None]
  - Nausea [None]
  - Social avoidant behaviour [None]
  - Headache [None]
  - Ageusia [None]
  - Vision blurred [None]
  - Thinking abnormal [None]
  - Anosmia [None]
  - Tremor [None]
  - Therapeutic product effect decreased [None]

NARRATIVE: CASE EVENT DATE: 20180701
